FAERS Safety Report 6463098-5 (Version None)
Quarter: 2009Q4

REPORT INFORMATION
  Report Type: 
  Country: None (occurrence: None)
  Receive Date: 20091130
  Receipt Date: 20091117
  Transmission Date: 20100525
  Serious: No
  Sender: FDA-Public Use
  Company Number: US-ELI_LILLY_AND_COMPANY-US200909001947

PATIENT
  Age: 35 Year
  Sex: Male
  Weight: 60.317 kg

DRUGS (3)
  1. ZYPREXA [Suspect]
     Indication: PSYCHOTIC DISORDER
     Dosage: 30 MG, UNK
  2. TEGRETOL [Concomitant]
     Dosage: 500 MG, DAILY (1/D)
  3. AMOXICILLIN [Concomitant]
     Dosage: 2 G, UNK
     Route: 042
     Dates: start: 20090106

REACTIONS (4)
  - ACTIVATED PARTIAL THROMBOPLASTIN TIME PROLONGED [None]
  - HAEMORRHAGE [None]
  - OVERDOSE [None]
  - TOOTH DISORDER [None]
